FAERS Safety Report 7350617-X (Version None)
Quarter: 2011Q1

REPORT INFORMATION
  Report Type: 
  Country: None (occurrence: None)
  Receive Date: 20110314
  Receipt Date: 20110303
  Transmission Date: 20110831
  Serious: Yes (Hospitalization)
  Sender: FDA-Public Use
  Company Number: DK-JNJFOC-20100808827

PATIENT
  Sex: Female
  Weight: 100 kg

DRUGS (9)
  1. SALAZOPYRIN [Concomitant]
  2. REMICADE [Suspect]
     Route: 042
  3. PANADOL [Concomitant]
     Indication: PAIN
     Route: 048
  4. BONYL [Concomitant]
     Indication: PAIN
     Route: 048
  5. FOLACID [Concomitant]
     Indication: VITAMIN SUPPLEMENTATION
  6. REMICADE [Suspect]
     Indication: PSORIATIC ARTHROPATHY
     Dosage: 300 MG AT WEEK 0, 2, 6
     Route: 042
  7. METHOTREXAT [Concomitant]
     Indication: PSORIATIC ARTHROPATHY
  8. SALAZOPYRIN [Concomitant]
  9. REMICADE [Suspect]
     Route: 042

REACTIONS (4)
  - ANAPHYLACTIC REACTION [None]
  - VOMITING [None]
  - DYSPNOEA [None]
  - INFUSION RELATED REACTION [None]
